FAERS Safety Report 7412659-5 (Version None)
Quarter: 2011Q2

REPORT INFORMATION
  Report Type: 
  Country: None (occurrence: None)
  Receive Date: 20110413
  Receipt Date: 20110408
  Transmission Date: 20111010
  Serious: No
  Sender: FDA-Public Use
  Company Number: US-PFIZER INC-2011078336

PATIENT
  Sex: Male
  Weight: 65.76 kg

DRUGS (2)
  1. LORAZEPAM [Concomitant]
     Indication: ANXIETY
     Dosage: HALF TABLET OF 0.5 MG DAILY
     Route: 048
     Dates: start: 20110101
  2. EFFEXOR XR [Suspect]
     Indication: ANXIETY
     Dosage: 37.5 MG, 1X/DAY
     Route: 048
     Dates: start: 20110401

REACTIONS (1)
  - ANXIETY [None]
